FAERS Safety Report 12564117 (Version 1)
Quarter: 2016Q3

REPORT INFORMATION
  Report Type: Spontaneous
  Country: US (occurrence: US)
  Receive Date: 20160718
  Receipt Date: 20160718
  Transmission Date: 20161109
  Serious: No
  Sender: FDA-Public Use
  Company Number: US-ASTRAZENECA-2016SE59612

PATIENT
  Age: 26877 Day
  Sex: Female
  Weight: 68 kg

DRUGS (4)
  1. COZAAR [Concomitant]
     Active Substance: LOSARTAN POTASSIUM
     Indication: HYPERTENSION
     Route: 048
  2. PULMICORT FLEXHALER [Suspect]
     Active Substance: BUDESONIDE
     Indication: ASTHMA
     Dosage: 180 MCG 225 MG, 2 PUFFS TWICE A DAY
     Route: 055
     Dates: start: 2011
  3. PLAVIX [Concomitant]
     Active Substance: CLOPIDOGREL BISULFATE
     Indication: STENT PLACEMENT
     Route: 048
  4. TEGRETOL [Concomitant]
     Active Substance: CARBAMAZEPINE
     Indication: COMPLEX PARTIAL SEIZURES
     Route: 048
     Dates: start: 2010

REACTIONS (4)
  - Stomatitis [Unknown]
  - Drug administration error [Unknown]
  - Device issue [Unknown]
  - Drug dose omission [Unknown]
